FAERS Safety Report 5858575-1 (Version None)
Quarter: 2008Q3

REPORT INFORMATION
  Report Type: 
  Country: None (occurrence: None)
  Receive Date: 20080818
  Receipt Date: 20080610
  Transmission Date: 20090109
  Serious: No
  Sender: FDA-Public Use
  Company Number: TPA2008A00773

PATIENT
  Age: 49 Year
  Sex: Female
  Weight: 63.5036 kg

DRUGS (3)
  1. ROZEREM [Suspect]
     Indication: INITIAL INSOMNIA
     Dosage: QHS, PER ORAL
     Route: 048
     Dates: start: 20080508, end: 20080511
  2. LEXAPRO [Concomitant]
  3. IMIPRAMINE [Concomitant]

REACTIONS (6)
  - ANXIETY [None]
  - CONDITION AGGRAVATED [None]
  - INITIAL INSOMNIA [None]
  - MERYCISM [None]
  - NERVOUS SYSTEM DISORDER [None]
  - POOR QUALITY SLEEP [None]
